FAERS Safety Report 9393137 (Version 1)
Quarter: 2013Q3

REPORT INFORMATION
  Report Type: Spontaneous
  Country: JP (occurrence: JP)
  Receive Date: 20130710
  Receipt Date: 20130710
  Transmission Date: 20140515
  Serious: Yes (Other)
  Sender: FDA-Public Use
  Company Number: JP-ELI_LILLY_AND_COMPANY-JP201306008593

PATIENT
  Age: 66 Year
  Sex: Male

DRUGS (3)
  1. ZYPREXA [Suspect]
     Indication: SCHIZOPHRENIA
     Dosage: 20 MG, QD
     Route: 065
  2. SULPIRIDE [Concomitant]
     Indication: SCHIZOPHRENIA
     Dosage: 300 UNK, UNK
  3. RISUMIC [Concomitant]
     Indication: HYPOTENSION
     Dosage: 20 UNK, UNK

REACTIONS (3)
  - Neuroendocrine carcinoma [Unknown]
  - Neuroleptic malignant syndrome [Unknown]
  - Electrocardiogram abnormal [Unknown]
